FAERS Safety Report 20922138 (Version 7)
Quarter: 2023Q2

REPORT INFORMATION
  Report Type: Report from Study
  Country: US (occurrence: US)
  Receive Date: 20220607
  Receipt Date: 20230626
  Transmission Date: 20230721
  Serious: Yes (Other)
  Sender: FDA-Public Use
  Company Number: US-ACADIA PHARMACEUTICALS INC.-ACA-2022-PIM-001708

PATIENT
  Age: 64 Year
  Sex: Male
  Weight: 106 kg

DRUGS (21)
  1. NUPLAZID [Suspect]
     Active Substance: PIMAVANSERIN TARTRATE
     Indication: Parkinson^s disease psychosis
     Dosage: 34 MILLIGRAM, QD
     Route: 048
     Dates: start: 20220221
  2. NUPLAZID [Suspect]
     Active Substance: PIMAVANSERIN TARTRATE
     Indication: Hallucination
     Dosage: 34 MILLIGRAM, ONCE EVERY OTHER DAY
     Route: 048
  3. NUPLAZID [Suspect]
     Active Substance: PIMAVANSERIN TARTRATE
     Indication: Delusion
     Dosage: 34 MILLIGRAM, QD
     Route: 048
     Dates: start: 20220701
  4. NUPLAZID [Suspect]
     Active Substance: PIMAVANSERIN TARTRATE
     Indication: Parkinson^s disease
  5. RYTARY [Concomitant]
     Active Substance: CARBIDOPA\LEVODOPA
  6. FLOMAX [Concomitant]
     Active Substance: TAMSULOSIN HYDROCHLORIDE
     Dosage: 0.4MG
  7. ELIQUIS [Concomitant]
     Active Substance: APIXABAN
  8. BETHANECHOL [Concomitant]
     Active Substance: BETHANECHOL
  9. VITAMIN D3 [Concomitant]
     Active Substance: CHOLECALCIFEROL
  10. MELATONIN [Concomitant]
     Active Substance: MELATONIN
  11. VITAMINS NOS [Concomitant]
     Active Substance: VITAMINS
  12. SERTRALINE [Concomitant]
     Active Substance: SERTRALINE HYDROCHLORIDE
     Dosage: 150 MILLIGRAM
  13. CLONAZEPAM [Concomitant]
     Active Substance: CLONAZEPAM
     Indication: Sleep disorder
     Dosage: 2 MILLIGRAM
  14. ATORVASTATIN [Concomitant]
     Active Substance: ATORVASTATIN
  15. INDERAL [Concomitant]
     Active Substance: PROPRANOLOL HYDROCHLORIDE
  16. KEPPRA [Concomitant]
     Active Substance: LEVETIRACETAM
  17. TAMSULOSIN [Concomitant]
     Active Substance: TAMSULOSIN
     Dosage: 0.4 MG
  18. FINASTERIDE [Concomitant]
     Active Substance: FINASTERIDE
     Dosage: 5 MILLIGRAM
  19. TIMOLOL [Concomitant]
     Active Substance: TIMOLOL
     Dosage: 0.5 PERCENT
  20. OXYBUTYNIN [Concomitant]
     Active Substance: OXYBUTYNIN
     Dosage: QPM
  21. VITAMIN D3 [Concomitant]
     Active Substance: CHOLECALCIFEROL
     Dosage: 5000 IU

REACTIONS (13)
  - Suicidal ideation [Not Recovered/Not Resolved]
  - Urinary tract infection [Not Recovered/Not Resolved]
  - Fatigue [Not Recovered/Not Resolved]
  - Feeling abnormal [Unknown]
  - Chest discomfort [Not Recovered/Not Resolved]
  - Palpitations [Not Recovered/Not Resolved]
  - Memory impairment [Not Recovered/Not Resolved]
  - Inappropriate schedule of product administration [Not Recovered/Not Resolved]
  - Paranoia [Not Recovered/Not Resolved]
  - Dizziness [Not Recovered/Not Resolved]
  - Pre-existing condition improved [Recovered/Resolved]
  - Dysarthria [Not Recovered/Not Resolved]
  - Pleurothotonus [Not Recovered/Not Resolved]

NARRATIVE: CASE EVENT DATE: 20220615
